FAERS Safety Report 8572150-X (Version None)
Quarter: 2012Q3

REPORT INFORMATION
  Report Type: 
  Country: None (occurrence: None)
  Receive Date: 20120806
  Receipt Date: 20120507
  Transmission Date: 20120928
  Serious: No
  Sender: FDA-Public Use
  Company Number: US-009507513-2012SP035028

PATIENT

DRUGS (1)
  1. COPPERTONE ULTRAGUARD [Suspect]
     Indication: PRODUCT USED FOR UNKNOWN INDICATION
     Dosage: 3 DF, QD
     Route: 061
     Dates: start: 20120505

REACTIONS (5)
  - INSOMNIA [None]
  - SUNBURN [None]
  - NO THERAPEUTIC RESPONSE [None]
  - POISONING [None]
  - BACK PAIN [None]
